FAERS Safety Report 10518593 (Version 1)
Quarter: 2014Q4

REPORT INFORMATION
  Report Type: Spontaneous
  Country: GB (occurrence: GB)
  Receive Date: 20141015
  Receipt Date: 20141015
  Transmission Date: 20150528
  Serious: Yes (Other)
  Sender: FDA-Public Use
  Company Number: GB-LEO PHARMA-223175

PATIENT
  Age: 67 Year
  Sex: Male

DRUGS (2)
  1. PROPANOLOL [Concomitant]
     Active Substance: PROPRANOLOL HYDROCHLORIDE
     Indication: ANXIETY
     Route: 048
     Dates: start: 201112
  2. PICATO [Suspect]
     Active Substance: INGENOL MEBUTATE
     Indication: ACTINIC KERATOSIS
     Dates: start: 20130511, end: 20130513

REACTIONS (3)
  - Incorrect dose administered [Recovered/Resolved]
  - Product quality issue [Unknown]
  - Superinfection [Recovered/Resolved]

NARRATIVE: CASE EVENT DATE: 20130511
